FAERS Safety Report 18629132 (Version 1)
Quarter: 2020Q4

REPORT INFORMATION
  Report Type: Spontaneous
  Country: JP (occurrence: JP)
  Receive Date: 20201217
  Receipt Date: 20201217
  Transmission Date: 20210114
  Serious: Yes (Other)
  Sender: FDA-Public Use
  Company Number: JP-SEATTLE GENETICS-2020SGN04860

PATIENT
  Age: 3 Decade

DRUGS (1)
  1. ADCETRIS [Suspect]
     Active Substance: BRENTUXIMAB VEDOTIN
     Indication: HODGKIN^S DISEASE
     Dosage: UNK
     Route: 041

REACTIONS (3)
  - Disease progression [Unknown]
  - Hodgkin^s disease [Unknown]
  - Neuropathy peripheral [Recovering/Resolving]
